FAERS Safety Report 22049857 (Version 1)
Quarter: 2023Q1

REPORT INFORMATION
  Report Type: Spontaneous
  Country: GR (occurrence: GR)
  Receive Date: 20230301
  Receipt Date: 20230301
  Transmission Date: 20230418
  Serious: Yes (Hospitalization, Other)
  Sender: FDA-Public Use
  Company Number: GR-PFIZER INC-PV202300038493

PATIENT
  Age: 41 Year
  Sex: Female
  Weight: 88 kg

DRUGS (2)
  1. INFLIXIMAB [Suspect]
     Active Substance: INFLIXIMAB
     Indication: Colitis ulcerative
     Dosage: UNK
     Route: 065
  2. REMICADE [Suspect]
     Active Substance: INFLIXIMAB
     Indication: Colitis ulcerative
     Dosage: 5.11 MG/KG, (8 WEEK)
     Route: 042
     Dates: start: 20180620, end: 20221017

REACTIONS (3)
  - Anal haemorrhage [Recovered/Resolved]
  - Headache [Unknown]
  - Therapeutic product effect decreased [Unknown]
